FAERS Safety Report 8608089-0 (Version None)
Quarter: 2012Q3

REPORT INFORMATION
  Report Type: 
  Country: None (occurrence: None)
  Receive Date: 20120821
  Receipt Date: 20120817
  Transmission Date: 20120928
  Serious: Yes (Other)
  Sender: FDA-Public Use
  Company Number: PHHY2012DE071461

PATIENT
  Sex: Male

DRUGS (1)
  1. RASILEZ HCT [Suspect]

REACTIONS (2)
  - CIRCULATORY COLLAPSE [None]
  - DRUG INTOLERANCE [None]
